FAERS Safety Report 16971522 (Version 1)
Quarter: 2019Q4

REPORT INFORMATION
  Report Type: Spontaneous
  Country: FR (occurrence: FR)
  Receive Date: 20191029
  Receipt Date: 20191029
  Transmission Date: 20200122
  Serious: Yes (Congenital Anomaly)
  Sender: FDA-Public Use
  Company Number: NVSC2019FR017984

PATIENT

DRUGS (15)
  1. FENTANYL. [Suspect]
     Active Substance: FENTANYL
     Indication: FOETAL EXPOSURE DURING PREGNANCY
     Dosage: UNK UKN
     Route: 064
  2. CARBOPLATIN. [Suspect]
     Active Substance: CARBOPLATIN
     Indication: FOETAL EXPOSURE DURING PREGNANCY
     Dosage: UNK UKN
     Route: 064
  3. PANTOPRAZOLE [Suspect]
     Active Substance: PANTOPRAZOLE
     Indication: FOETAL EXPOSURE DURING PREGNANCY
     Route: 064
  4. ETOPOSIDE. [Suspect]
     Active Substance: ETOPOSIDE
     Indication: FOETAL EXPOSURE DURING PREGNANCY
     Route: 064
  5. AMIKACIN. [Suspect]
     Active Substance: AMIKACIN
     Indication: FOETAL EXPOSURE DURING PREGNANCY
     Dosage: UNK UKN
     Route: 064
  6. APREPITANT. [Suspect]
     Active Substance: APREPITANT
     Indication: FOETAL EXPOSURE DURING PREGNANCY
     Dosage: UNK UKN
     Route: 064
  7. OXYCODONE [Suspect]
     Active Substance: OXYCODONE
     Indication: FOETAL EXPOSURE DURING PREGNANCY
     Dosage: UNK UKN
     Route: 064
  8. METOCLOPRAMIDE. [Suspect]
     Active Substance: METOCLOPRAMIDE
     Indication: FOETAL EXPOSURE DURING PREGNANCY
     Dosage: UNK UKN
     Route: 064
  9. PHLOROGLUCINOL [Suspect]
     Active Substance: PHLOROGLUCINOL
     Indication: FOETAL EXPOSURE DURING PREGNANCY
     Dosage: UNK UKN
     Route: 064
  10. CEFTRIAXONE. [Suspect]
     Active Substance: CEFTRIAXONE
     Indication: FOETAL EXPOSURE DURING PREGNANCY
     Dosage: UNK UKN
     Route: 064
  11. LENOGRASTIM [Suspect]
     Active Substance: LENOGRASTIM
     Indication: FOETAL EXPOSURE DURING PREGNANCY
     Dosage: UNK UKN
     Route: 064
  12. RASBURICASE [Suspect]
     Active Substance: RASBURICASE
     Indication: FOETAL EXPOSURE DURING PREGNANCY
     Dosage: UNK UKN
     Route: 064
  13. PEGFILGRASTIM [Suspect]
     Active Substance: PEGFILGRASTIM
     Indication: FOETAL EXPOSURE DURING PREGNANCY
     Dosage: UNK UKN
     Route: 064
  14. FLUOROQUINOLONES [Suspect]
     Active Substance: UNSPECIFIED INGREDIENT
     Indication: FOETAL EXPOSURE DURING PREGNANCY
     Dosage: UNK UKN
     Route: 064
  15. PACLITAXEL. [Suspect]
     Active Substance: PACLITAXEL
     Indication: FOETAL EXPOSURE DURING PREGNANCY
     Dosage: UNK UKN
     Route: 064

REACTIONS (2)
  - Foetal exposure during pregnancy [Unknown]
  - Septum pellucidum agenesis [Unknown]
